FAERS Safety Report 10102899 (Version 2)
Quarter: 2014Q2

REPORT INFORMATION
  Report Type: Other
  Country: US (occurrence: US)
  Receive Date: 20140424
  Receipt Date: 20140609
  Transmission Date: 20141212
  Serious: Yes (Hospitalization, Other)
  Sender: FDA-Public Use
  Company Number: US-GSKPPD-2014GSK000181

PATIENT
  Age: 62 Year
  Sex: Male
  Weight: 82.63 kg

DRUGS (6)
  1. AVANDIA [Suspect]
     Indication: DIABETES MELLITUS
     Route: 048
     Dates: start: 20040811, end: 20101208
  2. VERAPAMIL [Concomitant]
     Route: 048
  3. CLONIDINE [Concomitant]
     Route: 048
  4. PLAVIX [Concomitant]
     Route: 048
  5. COREG [Concomitant]
     Route: 048
  6. LISINOPRIL [Concomitant]
     Route: 048

REACTIONS (1)
  - Myocardial infarction [Recovered/Resolved]
